FAERS Safety Report 11298841 (Version 1)
Quarter: 2015Q3

REPORT INFORMATION
  Report Type: Spontaneous
  Country: US (occurrence: US)
  Receive Date: 20150722
  Receipt Date: 20150722
  Transmission Date: 20151125
  Serious: No
  Sender: FDA-Public Use
  Company Number: US-ELI_LILLY_AND_COMPANY-US201205002685

PATIENT
  Age: 11 Year
  Sex: Female

DRUGS (1)
  1. HUMATROPE [Suspect]
     Active Substance: SOMATROPIN
     Indication: TURNER^S SYNDROME
     Dosage: 2.4 MG (SIX DAYS IN A WEEK)

REACTIONS (6)
  - Nausea [Unknown]
  - Headache [Unknown]
  - Pallor [Unknown]
  - Abdominal pain upper [Unknown]
  - Feeling abnormal [Unknown]
  - Drug dose omission [Unknown]

NARRATIVE: CASE EVENT DATE: 20120429
